FAERS Safety Report 21967478 (Version 1)
Quarter: 2023Q1

REPORT INFORMATION
  Report Type: Report from Study
  Country: DE (occurrence: DE)
  Receive Date: 20230208
  Receipt Date: 20230208
  Transmission Date: 20230417
  Serious: Yes (Other)
  Sender: FDA-Public Use
  Company Number: DE-BRISTOL-MYERS SQUIBB COMPANY-2022-031743

PATIENT
  Age: 74 Year
  Sex: Female
  Weight: 73.5 kg

DRUGS (4)
  1. FLUOROURACIL [Suspect]
     Active Substance: FLUOROURACIL
     Indication: Oesophageal carcinoma
     Dosage: UNK, FREQUENCY: 14
     Route: 065
     Dates: start: 20220302
  2. OPDIVO [Suspect]
     Active Substance: NIVOLUMAB
     Indication: Oesophageal carcinoma
     Dosage: 240 MILLIGRAM (FREQUENCY: 14)
     Route: 042
     Dates: start: 20220302
  3. OXALIPLATIN [Suspect]
     Active Substance: OXALIPLATIN
     Indication: Oesophageal carcinoma
     Dosage: 144 MILLIGRAM (FREQUENCY: 14)
     Route: 042
     Dates: start: 20220302, end: 20220602
  4. GRANISETRON [Concomitant]
     Active Substance: GRANISETRON
     Indication: Prophylaxis
     Dosage: 1 MILLIGRAM, QW
     Route: 048
     Dates: start: 20220302

REACTIONS (8)
  - Polyneuropathy [Recovering/Resolving]
  - Hypoaesthesia [Unknown]
  - Muscular weakness [Unknown]
  - Paraesthesia [Unknown]
  - Myalgia [Unknown]
  - Fluid retention [Unknown]
  - Constipation [Unknown]
  - Decreased appetite [Unknown]

NARRATIVE: CASE EVENT DATE: 20220302
